FAERS Safety Report 7606861-7 (Version None)
Quarter: 2011Q3

REPORT INFORMATION
  Report Type: 
  Country: None (occurrence: None)
  Receive Date: 20110713
  Receipt Date: 20110704
  Transmission Date: 20111222
  Serious: Yes (Death)
  Sender: FDA-Public Use
  Company Number: JP-GLAXOSMITHKLINE-B0318652A

PATIENT
  Sex: Male
  Weight: 76 kg

DRUGS (10)
  1. GRAN [Concomitant]
     Dosage: 600MCG PER DAY
     Dates: start: 20030611, end: 20030618
  2. ALKERAN [Suspect]
     Indication: STEM CELL TRANSPLANT
     Dosage: 90MGM2 PER DAY
     Route: 042
     Dates: start: 20030607, end: 20030608
  3. PIRARUBICIN HYDROCHLORIDE [Concomitant]
     Indication: STEM CELL TRANSPLANT
     Dosage: 40MGM2 PER DAY
     Dates: start: 20030603, end: 20030604
  4. ETOPOSIDE [Suspect]
     Indication: STEM CELL TRANSPLANT
     Dosage: 200MGM2 PER DAY
     Dates: start: 20030603, end: 20030606
  5. ZOVIRAX [Concomitant]
     Dosage: 1G PER DAY
     Route: 048
     Dates: start: 20030614, end: 20030618
  6. CARBOPLATIN [Concomitant]
     Indication: STEM CELL TRANSPLANT
     Dates: start: 20030603, end: 20030606
  7. CARBENIN [Concomitant]
     Dosage: 2G PER DAY
     Route: 042
     Dates: start: 20030614, end: 20030618
  8. VANCOMYCIN HYCHLORIDE [Concomitant]
     Dosage: 1G PER DAY
     Route: 048
     Dates: start: 20030614, end: 20030618
  9. BROACT [Concomitant]
     Dosage: 2G PER DAY
     Route: 042
     Dates: start: 20030612, end: 20030613
  10. DIFLUCAN [Concomitant]
     Dosage: 400MG PER DAY
     Route: 042
     Dates: start: 20030614, end: 20030618

REACTIONS (10)
  - RESPIRATORY FAILURE [None]
  - PLATELET COUNT DECREASED [None]
  - DEHYDRATION [None]
  - RENAL FAILURE [None]
  - DIARRHOEA [None]
  - CARDIAC FAILURE [None]
  - ASCITES [None]
  - SEPSIS [None]
  - HAEMATOCRIT DECREASED [None]
  - ENTEROCOLITIS HAEMORRHAGIC [None]
